FAERS Safety Report 4975600-0 (Version None)
Quarter: 2006Q2

REPORT INFORMATION
  Report Type: 
  Country: None (occurrence: None)
  Receive Date: 20060418
  Receipt Date: 20060406
  Transmission Date: 20061013
  Serious: Yes (Death, Hospitalization, Other)
  Sender: FDA-Public Use
  Company Number: FR-BRISTOL-MYERS SQUIBB COMPANY-13340575

PATIENT
  Age: 78 Year
  Sex: Female
  Weight: 55 kg

DRUGS (7)
  1. ELISOR TABS [Suspect]
     Route: 048
  2. PREVISCAN [Interacting]
  3. DIGOXIN [Concomitant]
  4. ESIDRIX [Concomitant]
  5. CORVASAL [Concomitant]
  6. HYPERIUM [Concomitant]
  7. TAREG [Concomitant]

REACTIONS (11)
  - DEATH [None]
  - DEHYDRATION [None]
  - DEMENTIA [None]
  - DEPRESSION [None]
  - DRUG INTERACTION [None]
  - GENERAL PHYSICAL HEALTH DETERIORATION [None]
  - HYPOKALAEMIA [None]
  - INTERNATIONAL NORMALISED RATIO INCREASED [None]
  - PROTHROMBIN LEVEL DECREASED [None]
  - RESPIRATORY TRACT CONGESTION [None]
  - SUICIDAL IDEATION [None]
